FAERS Safety Report 4307226-6 (Version None)
Quarter: 2004Q1

REPORT INFORMATION
  Report Type: 
  Country: None (occurrence: None)
  Receive Date: 20040226
  Receipt Date: 20040204
  Transmission Date: 20041129
  Serious: Yes (Hospitalization)
  Sender: FDA-Public Use
  Company Number: CHPA2004US00721

PATIENT
  Age: 4 Year
  Sex: Female
  Weight: 17.2 kg

DRUGS (2)
  1. TRIAMINIC SRT [Suspect]
     Indication: NASOPHARYNGITIS
     Dosage: 1 SOFTCHEW ONCE/SINGLE, ORAL
     Route: 048
     Dates: start: 20040127, end: 20040127
  2. BENADRYL ^WARNER-LAMBERT^ [Concomitant]

REACTIONS (1)
  - GRAND MAL CONVULSION [None]
